FAERS Safety Report 16797963 (Version 1)
Quarter: 2019Q3

REPORT INFORMATION
  Report Type: Spontaneous
  Country: US (occurrence: US)
  Receive Date: 20190912
  Receipt Date: 20190912
  Transmission Date: 20191005
  Serious: No
  Sender: FDA-Public Use
  Company Number: US-APOTEX-2019AP021173

PATIENT
  Age: 32 Year
  Sex: Female

DRUGS (2)
  1. AZITHROMYCIN ANHYDROUS. [Suspect]
     Active Substance: AZITHROMYCIN ANHYDROUS
     Indication: GONOCOCCAL INFECTION
     Dosage: 1 G, UNK
     Route: 048
  2. CEFTRIAXONE. [Concomitant]
     Active Substance: CEFTRIAXONE
     Indication: GONOCOCCAL INFECTION
     Dosage: 1 G, UNK
     Route: 030

REACTIONS (2)
  - Drug intolerance [Unknown]
  - Vomiting [Unknown]
